FAERS Safety Report 5442052-6 (Version None)
Quarter: 2007Q3

REPORT INFORMATION
  Report Type: 
  Country: None (occurrence: None)
  Receive Date: 20070904
  Receipt Date: 20070827
  Transmission Date: 20080115
  Serious: Yes (Other)
  Sender: FDA-Public Use
  Company Number: DE-AVENTIS-200717834GDDC

PATIENT
  Age: 43 Year
  Sex: Male

DRUGS (6)
  1. FLUOROURACIL [Suspect]
     Dosage: DOSE: UNK
     Route: 042
  2. LEUCOVORIN CALCIUM [Concomitant]
     Dosage: DOSE: UNK
     Route: 042
  3. MITOMYCIN [Concomitant]
     Dosage: DOSE: UNK
     Route: 042
  4. RADIOTHERAPY [Concomitant]
     Dosage: DOSE: 1.8 GY (PLANNED TOTAL 50.4 GY)
  5. OXALIPLATIN [Concomitant]
     Dosage: DOSE: UNK
     Route: 042
  6. OXALIPLATIN [Concomitant]
     Dosage: DOSE: UNK
     Route: 042

REACTIONS (1)
  - COLITIS [None]
